FAERS Safety Report 14245008 (Version 4)
Quarter: 2018Q3

REPORT INFORMATION
  Report Type: Report from Study
  Country: DE (occurrence: DE)
  Receive Date: 20171201
  Receipt Date: 20180927
  Transmission Date: 20181010
  Serious: Yes (Hospitalization, Other)
  Sender: FDA-Public Use
  Company Number: DE-ROCHE-2029361

PATIENT
  Age: 55 Year
  Sex: Female

DRUGS (8)
  1. VIGANTOLETTEN [Concomitant]
     Active Substance: CHOLECALCIFEROL
  2. ALENDRONIC ACID [Concomitant]
     Active Substance: ALENDRONIC ACID
  3. VIDISEPT [Concomitant]
  4. TOCILIZUMAB. [Suspect]
     Active Substance: TOCILIZUMAB
     Indication: RHEUMATOID ARTHRITIS
     Route: 058
     Dates: end: 20170723
  5. OLUMIANT [Suspect]
     Active Substance: BARICITINIB
     Indication: RHEUMATOID ARTHRITIS
     Route: 065
  6. PREDNISOLON [Concomitant]
     Active Substance: PREDNISOLONE
  7. FOLIC ACID. [Concomitant]
     Active Substance: FOLIC ACID
  8. PANTOPRAZOL [Concomitant]
     Active Substance: PANTOPRAZOLE SODIUM

REACTIONS (15)
  - Steatohepatitis [Unknown]
  - Osteoporotic fracture [Unknown]
  - Nasopharyngitis [Unknown]
  - Rheumatoid arthritis [Recovered/Resolved]
  - Duodenal ulcer [Unknown]
  - Dyspnoea [Unknown]
  - Reactive gastropathy [Unknown]
  - Blood count abnormal [Unknown]
  - Hiatus hernia [Unknown]
  - Dry eye [Unknown]
  - Gastrooesophageal reflux disease [Unknown]
  - Chronic gastritis [Unknown]
  - Hepatic steatosis [Unknown]
  - Infectious colitis [Unknown]
  - Duodenitis [Unknown]

NARRATIVE: CASE EVENT DATE: 20170215
